FAERS Safety Report 8162410-9 (Version None)
Quarter: 2012Q1

REPORT INFORMATION
  Report Type: 
  Country: None (occurrence: None)
  Receive Date: 20120224
  Receipt Date: 20120221
  Transmission Date: 20120608
  Serious: Yes (Death, Other)
  Sender: FDA-Public Use
  Company Number: PHHY2012CH014919

PATIENT
  Age: 46 Year
  Sex: Male

DRUGS (2)
  1. CEFAZOLIN [Suspect]
     Indication: INFECTIOUS PERITONITIS
     Dosage: 1 G, QD
  2. CEFOTAXIME [Concomitant]
     Indication: INFECTIOUS PERITONITIS

REACTIONS (9)
  - DEATH [None]
  - FLANK PAIN [None]
  - RENAL HAEMORRHAGE [None]
  - INTERNATIONAL NORMALISED RATIO INCREASED [None]
  - RENAL ATROPHY [None]
  - STAPHYLOCOCCAL INFECTION [None]
  - RENAL CELL CARCINOMA [None]
  - PERIRENAL HAEMATOMA [None]
  - RENAL CYST [None]
